FAERS Safety Report 16955473 (Version 1)
Quarter: 2019Q4

REPORT INFORMATION
  Report Type: Report from Study
  Country: IT (occurrence: IT)
  Receive Date: 20191024
  Receipt Date: 20191024
  Transmission Date: 20200122
  Serious: Yes (Hospitalization)
  Sender: FDA-Public Use
  Company Number: IT-TEVA-2019-IT-1126109

PATIENT
  Age: 73 Year
  Sex: Female
  Weight: 65 kg

DRUGS (6)
  1. DESAMETASONE FOSFATO HOSPIRA 4 MG/ML SOLUZIONE INIETTABILE [Concomitant]
  2. TOPOTECAN HYDROCHLORIDE. [Suspect]
     Active Substance: TOPOTECAN HYDROCHLORIDE
     Indication: UTERINE CANCER
     Route: 042
     Dates: start: 20190918, end: 20190918
  3. CARDIOASPIRIN 100 MG COMPRESSE GASTRORESISTENTI [Concomitant]
     Active Substance: ASPIRIN
  4. FOLINA 5 MG CAPSULE MOLLI [Concomitant]
  5. VESSEL? 250 ULS CAPSULE MOLLI [Concomitant]
  6. MONURIL 3 G GRANULATO PER SOLUZIONE ORALE [Concomitant]

REACTIONS (2)
  - Neutropenia [Recovering/Resolving]
  - Leukocoria [Recovering/Resolving]

NARRATIVE: CASE EVENT DATE: 20190926
